FAERS Safety Report 15948374 (Version 2)
Quarter: 2019Q1

REPORT INFORMATION
  Report Type: Report from Study
  Country: IE (occurrence: IE)
  Receive Date: 20190211
  Receipt Date: 20190215
  Transmission Date: 20190417
  Serious: Yes (Other)
  Sender: FDA-Public Use
  Company Number: IE-TAKEDA-2019TUS005595

PATIENT
  Age: 45 Year
  Sex: Male

DRUGS (5)
  1. VEDOLIZUMAB [Suspect]
     Active Substance: VEDOLIZUMAB
     Indication: COLITIS ULCERATIVE
     Dosage: 300 MILLIGRAM
     Route: 042
     Dates: start: 20160229
  2. RANITIDINE. [Concomitant]
     Active Substance: RANITIDINE
     Indication: REFLUX GASTRITIS
     Dosage: 150 MILLIGRAM
     Route: 048
  3. PROGRAF [Concomitant]
     Active Substance: TACROLIMUS\TACROLIMUS ANHYDROUS
     Dosage: 1 MILLIGRAM
     Route: 048
  4. CALCI CHEW [Concomitant]
     Indication: SUPPLEMENTATION THERAPY
     Dosage: UNK
  5. URSOFALK [Concomitant]
     Active Substance: URSODIOL
     Dosage: 500 MILLIGRAM
     Route: 048

REACTIONS (1)
  - Basal cell carcinoma [Recovered/Resolved]

NARRATIVE: CASE EVENT DATE: 201810
